FAERS Safety Report 10904753 (Version 1)
Quarter: 2015Q1

REPORT INFORMATION
  Report Type: Spontaneous
  Country: US (occurrence: US)
  Receive Date: 20150311
  Receipt Date: 20150311
  Transmission Date: 20150721
  Serious: Yes (Other)
  Sender: FDA-Public Use
  Company Number: US-ELI_LILLY_AND_COMPANY-USA040670795

PATIENT
  Age: 53 Year
  Sex: Female
  Weight: 69.09 kg

DRUGS (10)
  1. HUMULIN NOS [Suspect]
     Active Substance: INSULIN HUMAN
     Dosage: UNK, UNKNOWN
     Dates: start: 1982
  2. ASPIRIN                            /00002701/ [Concomitant]
     Active Substance: ASPIRIN
     Dosage: 86 MG, UNK
  3. HUMULIN NOS [Suspect]
     Active Substance: INSULIN HUMAN
     Dosage: UNK, UNKNOWN
     Dates: start: 1982
  4. HUMALOG [Suspect]
     Active Substance: INSULIN LISPRO
     Dosage: UNK, UNKNOWN
     Dates: start: 1996
  5. ILETIN I [Suspect]
     Active Substance: INSULIN PORK\INSULIN PURIFIED PORK
  6. LANTUS [Concomitant]
     Active Substance: INSULIN GLARGINE
     Dosage: UNK, UNKNOWN
  7. ILETIN I [Suspect]
     Active Substance: INSULIN PORK\INSULIN PURIFIED PORK
     Dosage: UNK, UNKNOWN
     Dates: start: 1974
  8. HUMULIN NOS [Suspect]
     Active Substance: INSULIN HUMAN
     Dosage: UNK, UNKNOWN
  9. ILETIN I [Suspect]
     Active Substance: INSULIN PORK\INSULIN PURIFIED PORK
     Dosage: UNK, UNKNOWN
     Dates: end: 1982
  10. HUMULIN L [Suspect]
     Active Substance: INSULIN HUMAN

REACTIONS (11)
  - Dizziness [Recovered/Resolved]
  - Blood glucose abnormal [Unknown]
  - Tremor [Recovered/Resolved]
  - Multiple allergies [Unknown]
  - Blood glucose decreased [Not Recovered/Not Resolved]
  - Dysstasia [Recovered/Resolved]
  - Injection site atrophy [Unknown]
  - Drug hypersensitivity [Unknown]
  - Paralysis [Unknown]
  - Blood glucose increased [Unknown]
  - Lipoatrophy [Unknown]

NARRATIVE: CASE EVENT DATE: 20040621
